FAERS Safety Report 24423082 (Version 1)
Quarter: 2024Q4

REPORT INFORMATION
  Report Type: Spontaneous
  Country: US (occurrence: US)
  Receive Date: 20241010
  Receipt Date: 20241010
  Transmission Date: 20250115
  Serious: Yes (Other)
  Sender: RANBAXY
  Company Number: US-SUN PHARMACEUTICAL INDUSTRIES LTD-2024R1-472411

PATIENT
  Age: 65 Year
  Sex: Male

DRUGS (4)
  1. BICALUTAMIDE [Suspect]
     Active Substance: BICALUTAMIDE
     Indication: Prostate cancer stage IV
     Dosage: UNK UNK, DAILY
     Route: 065
     Dates: start: 201607
  2. BICALUTAMIDE [Suspect]
     Active Substance: BICALUTAMIDE
     Indication: Metastases to bone
  3. LEUPROLIDE [Suspect]
     Active Substance: LEUPROLIDE
     Indication: Prostate cancer stage IV
     Dosage: UNK, EVERY THREE MONTHS
     Route: 065
     Dates: start: 201607
  4. LEUPROLIDE [Suspect]
     Active Substance: LEUPROLIDE
     Indication: Metastases to bone

REACTIONS (1)
  - Open angle glaucoma [Unknown]
